FAERS Safety Report 8267203-X (Version None)
Quarter: 2012Q2

REPORT INFORMATION
  Report Type: 
  Country: None (occurrence: None)
  Receive Date: 20120409
  Receipt Date: 20120404
  Transmission Date: 20120825
  Serious: Yes (Hospitalization)
  Sender: FDA-Public Use
  Company Number: FR-PFIZER INC-2012084629

PATIENT
  Age: 65 Year
  Sex: Female

DRUGS (5)
  1. MYAMBUTOL [Concomitant]
     Indication: LUNG INFECTION
     Dosage: UNK
  2. FORADIL [Concomitant]
     Dosage: UNK
  3. MOXIFLOXACIN HCL [Interacting]
     Indication: LUNG INFECTION
     Dosage: 400 MG, 1X/DAY
     Route: 048
     Dates: end: 20110104
  4. CLARITHROMYCIN [Concomitant]
     Indication: LUNG INFECTION
     Dosage: UNK
  5. ZOLOFT [Suspect]
     Dosage: UNK

REACTIONS (2)
  - HEPATITIS [None]
  - DRUG INTERACTION [None]
